FAERS Safety Report 6669506-9 (Version None)
Quarter: 2010Q2

REPORT INFORMATION
  Report Type: 
  Country: None (occurrence: None)
  Receive Date: 20100406
  Receipt Date: 20100330
  Transmission Date: 20101027
  Serious: Yes (Other)
  Sender: FDA-Public Use
  Company Number: PHHY2010US15612

PATIENT
  Sex: Female

DRUGS (5)
  1. EXTAVIA [Suspect]
     Indication: MULTIPLE SCLEROSIS
     Dosage: 0.25 MG, QOD
     Route: 058
     Dates: start: 20100204
  2. EXTAVIA [Suspect]
     Dosage: 0.25 MG, QOD
     Route: 058
     Dates: start: 20100302
  3. EXTAVIA [Suspect]
     Dosage: UNK
     Route: 058
     Dates: start: 20100308, end: 20100312
  4. EXTAVIA [Suspect]
     Dosage: 0.3 MG, UNK
     Route: 058
  5. ADVIL PM [Concomitant]
     Dosage: UNK
     Dates: start: 20100308

REACTIONS (9)
  - DEHYDRATION [None]
  - FEELING ABNORMAL [None]
  - INJECTION SITE ERYTHEMA [None]
  - INJECTION SITE INFECTION [None]
  - INJECTION SITE MASS [None]
  - INJECTION SITE SWELLING [None]
  - INSOMNIA [None]
  - MALAISE [None]
  - URTICARIA [None]
